FAERS Safety Report 5231255-1 (Version None)
Quarter: 2007Q1

REPORT INFORMATION
  Report Type: 
  Country: None (occurrence: None)
  Receive Date: 20070206
  Receipt Date: 20070131
  Transmission Date: 20070707
  Serious: Yes (Death, Other)
  Sender: FDA-Public Use
  Company Number: HQWYE190101FEB07

PATIENT
  Sex: Female
  Weight: 70.37 kg

DRUGS (2)
  1. ADVIL [Suspect]
     Indication: ARTHRITIS
     Dosage: 1 TABLET 4-5 TIMES DAILY
     Route: 048
     Dates: start: 20061101, end: 20061221
  2. ADVIL [Suspect]
     Indication: INTERVERTEBRAL DISC DEGENERATION

REACTIONS (3)
  - LOSS OF CONSCIOUSNESS [None]
  - LOWER GASTROINTESTINAL HAEMORRHAGE [None]
  - UPPER GASTROINTESTINAL HAEMORRHAGE [None]
